FAERS Safety Report 18380366 (Version 1)
Quarter: 2020Q4

REPORT INFORMATION
  Report Type: Other
  Country: CN (occurrence: CN)
  Receive Date: 20201013
  Receipt Date: 20201013
  Transmission Date: 20210114
  Serious: Yes (Other)
  Sender: FDA-Public Use
  Company Number: CN-ROCHE-2688487

PATIENT
  Sex: Female

DRUGS (2)
  1. CAPECITABINE. [Suspect]
     Active Substance: CAPECITABINE
     Indication: BREAST CANCER METASTATIC
     Route: 048
  2. GEMCITABINE. [Suspect]
     Active Substance: GEMCITABINE
     Indication: BREAST CANCER METASTATIC
     Route: 041

REACTIONS (12)
  - Palmar-plantar erythrodysaesthesia syndrome [Unknown]
  - Diarrhoea [Unknown]
  - Thrombocytopenia [Unknown]
  - Fatigue [Unknown]
  - Stomatitis [Unknown]
  - Haemorrhage [Unknown]
  - Renal injury [Unknown]
  - Anaemia [Unknown]
  - Neutropenia [Unknown]
  - Liver injury [Unknown]
  - Vomiting [Unknown]
  - Nausea [Unknown]
